FAERS Safety Report 6426029-X (Version None)
Quarter: 2009Q4

REPORT INFORMATION
  Report Type: 
  Country: None (occurrence: None)
  Receive Date: 20091104
  Receipt Date: 20091027
  Transmission Date: 20100525
  Serious: Yes (Hospitalization)
  Sender: FDA-Public Use
  Company Number: US-BIOGENIDEC-2009BI009972

PATIENT
  Age: 46 Year
  Sex: Male
  Weight: 131 kg

DRUGS (1)
  1. TYSABRI [Suspect]
     Indication: MULTIPLE SCLEROSIS
     Route: 042
     Dates: start: 20070517

REACTIONS (3)
  - MEMORY IMPAIRMENT [None]
  - MOBILITY DECREASED [None]
  - MYELITIS [None]
